FAERS Safety Report 7287305-4 (Version None)
Quarter: 2011Q1

REPORT INFORMATION
  Report Type: 
  Country: None (occurrence: None)
  Receive Date: 20110211
  Receipt Date: 20110204
  Transmission Date: 20110831
  Serious: Yes (Death, Hospitalization)
  Sender: FDA-Public Use
  Company Number: GB-CELGENEUS-167-C5013-10123374

PATIENT
  Sex: Female
  Weight: 68.6 kg

DRUGS (6)
  1. CC-5013 [Suspect]
     Indication: MULTIPLE MYELOMA
     Route: 048
     Dates: start: 20100615
  2. ASPIRIN [Concomitant]
     Route: 048
     Dates: start: 20100614
  3. DEXAMETHASONE [Suspect]
     Indication: MULTIPLE MYELOMA
     Route: 048
     Dates: start: 20100615
  4. ACICLOVIR [Concomitant]
     Route: 048
     Dates: start: 20100614
  5. CC-5013 [Suspect]
     Route: 048
     Dates: start: 20101201, end: 20101225
  6. DEXAMETHASONE [Suspect]
     Route: 048
     Dates: start: 20101201, end: 20101225

REACTIONS (3)
  - RENAL FAILURE CHRONIC [None]
  - PNEUMONIA [None]
  - PULMONARY OEDEMA [None]
